FAERS Safety Report 17908384 (Version 1)
Quarter: 2020Q2

REPORT INFORMATION
  Report Type: Spontaneous
  Country: CN (occurrence: CN)
  Receive Date: 20200617
  Receipt Date: 20200617
  Transmission Date: 20200714
  Serious: Yes (Other)
  Sender: FDA-Public Use
  Company Number: CN-PFIZER INC-2020231992

PATIENT
  Age: 54 Year
  Sex: Female

DRUGS (5)
  1. TYGACIL [Suspect]
     Active Substance: TIGECYCLINE
     Dosage: 50 MG, 2X/DAY
  2. SEROQUEL [Suspect]
     Active Substance: QUETIAPINE FUMARATE
  3. ZAVICEFTA [Suspect]
     Active Substance: AVIBACTAM SODIUM\CEFTAZIDIME
     Indication: KLEBSIELLA INFECTION
     Dosage: 2.5 G, 3X/DAY
     Dates: start: 20200606, end: 202006
  4. CASPOFUNGIN [Suspect]
     Active Substance: CASPOFUNGIN
     Dosage: 50 MG, 1X/DAY
  5. ZAVICEFTA [Suspect]
     Active Substance: AVIBACTAM SODIUM\CEFTAZIDIME
     Indication: ABDOMINAL INFECTION
     Dosage: 1.25 G, 2X/DAY
     Dates: start: 202006

REACTIONS (7)
  - Creatinine renal clearance decreased [Unknown]
  - Overdose [Unknown]
  - Respiratory tract haemorrhage [Unknown]
  - Coma [Not Recovered/Not Resolved]
  - Hypotension [Unknown]
  - Blood creatinine increased [Unknown]
  - Platelet count decreased [Not Recovered/Not Resolved]

NARRATIVE: CASE EVENT DATE: 202006
